FAERS Safety Report 16277641 (Version 4)
Quarter: 2019Q2

REPORT INFORMATION
  Report Type: Report from Study
  Country: US (occurrence: US)
  Receive Date: 20190506
  Receipt Date: 20190625
  Transmission Date: 20190711
  Serious: Yes (Other)
  Sender: FDA-Public Use
  Company Number: US-JNJFOC-20190403773

PATIENT
  Age: 76 Year
  Sex: Male

DRUGS (1)
  1. IMBRUVICA [Suspect]
     Active Substance: IBRUTINIB
     Indication: CHRONIC LYMPHOCYTIC LEUKAEMIA
     Route: 048
     Dates: start: 20190323

REACTIONS (13)
  - Anal incontinence [Unknown]
  - Myalgia [Not Recovered/Not Resolved]
  - Asthenia [Unknown]
  - Haemorrhoidal haemorrhage [Unknown]
  - Frequent bowel movements [Not Recovered/Not Resolved]
  - White blood cell count increased [Unknown]
  - Bone pain [Not Recovered/Not Resolved]
  - Fatigue [Unknown]
  - Adverse event [Unknown]
  - Abdominal discomfort [Unknown]
  - Constipation [Unknown]
  - Lethargy [Unknown]
  - Extra dose administered [Recovered/Resolved]

NARRATIVE: CASE EVENT DATE: 201903
